FAERS Safety Report 5911620-7 (Version None)
Quarter: 2008Q4

REPORT INFORMATION
  Report Type: 
  Country: None (occurrence: None)
  Receive Date: 20081003
  Receipt Date: 20080922
  Transmission Date: 20090506
  Serious: Yes (Other)
  Sender: FDA-Public Use
  Company Number: 2008SP019726

PATIENT
  Age: 65 Year
  Sex: Female

DRUGS (1)
  1. COPPERTONE SPORT CONTINUOUS SPRAY SPF 30 [Suspect]
     Indication: DRUG USE FOR UNKNOWN INDICATION
     Dosage: TOP
     Route: 061
     Dates: start: 20080914, end: 20080914

REACTIONS (6)
  - ANAPHYLACTIC SHOCK [None]
  - APPLICATION SITE EXFOLIATION [None]
  - APPLICATION SITE PAIN [None]
  - DERMATITIS CONTACT [None]
  - FEELING DRUNK [None]
  - PARAESTHESIA [None]
